FAERS Safety Report 7621455-5 (Version None)
Quarter: 2011Q3

REPORT INFORMATION
  Report Type: 
  Country: None (occurrence: None)
  Receive Date: 20110719
  Receipt Date: 20110707
  Transmission Date: 20111222
  Serious: Yes (Hospitalization)
  Sender: FDA-Public Use
  Company Number: NL-GILEAD-E2B_00001217

PATIENT
  Sex: Female
  Weight: 58.2 kg

DRUGS (2)
  1. FRUSEMIDE [Concomitant]
  2. AMBRISENTAN [Suspect]
     Indication: PULMONARY ARTERIAL HYPERTENSION
     Route: 048
     Dates: start: 20110328

REACTIONS (1)
  - CARDIAC FAILURE [None]
